FAERS Safety Report 8390029-3 (Version None)
Quarter: 2012Q2

REPORT INFORMATION
  Report Type: 
  Country: None (occurrence: None)
  Receive Date: 20120529
  Receipt Date: 20120514
  Transmission Date: 20120825
  Serious: Yes (Other)
  Sender: FDA-Public Use
  Company Number: US-JNJFOC-20120514147

PATIENT
  Sex: Male
  Weight: 84.82 kg

DRUGS (12)
  1. DURAGESIC-100 [Suspect]
     Route: 062
     Dates: start: 20010101
  2. FENTANYL CITRATE [Suspect]
     Indication: NECK PAIN
     Route: 062
  3. FENTANYL-100 [Suspect]
     Indication: NECK PAIN
     Route: 062
  4. FENTANYL CITRATE [Suspect]
     Route: 062
  5. FENTANYL CITRATE [Suspect]
     Dosage: 100 UG/HR AND 25 UG/HR PATCH
     Route: 062
  6. VICODIN [Suspect]
     Indication: BREAKTHROUGH PAIN
     Dosage: EVERY 6 HOURS AS NEEDED
     Route: 048
     Dates: start: 20010101, end: 20120501
  7. NORCO [Suspect]
     Indication: BREAKTHROUGH PAIN
     Dosage: 2 EVERY 4 HOURS AS NEEDED
     Route: 048
     Dates: start: 20110101
  8. FENTANYL-100 [Suspect]
     Dosage: 100 AND 25 UG/HR
     Route: 062
  9. SOMA [Concomitant]
     Indication: MUSCLE RELAXANT THERAPY
     Route: 048
     Dates: start: 20010101
  10. FENTANYL CITRATE [Suspect]
     Dosage: 100UG/HR+25 UG/HR PATCH
     Route: 062
  11. NEURONTIN [Concomitant]
     Indication: ANTIINFLAMMATORY THERAPY
     Route: 048
     Dates: start: 20010101
  12. DURAGESIC-100 [Suspect]
     Indication: NECK PAIN
     Dosage: 100 UG/HR AND 25 UG/HR
     Route: 062

REACTIONS (7)
  - SINUS OPERATION [None]
  - OROPHARYNGEAL PAIN [None]
  - WITHDRAWAL SYNDROME [None]
  - PRODUCT ADHESION ISSUE [None]
  - DRUG TOLERANCE [None]
  - HYPERHIDROSIS [None]
  - WRONG TECHNIQUE IN DRUG USAGE PROCESS [None]
